FAERS Safety Report 20509224 (Version 3)
Quarter: 2022Q1

REPORT INFORMATION
  Report Type: Report from Study
  Country: US (occurrence: US)
  Receive Date: 20220223
  Receipt Date: 20220304
  Transmission Date: 20220424
  Serious: Yes (Hospitalization)
  Sender: FDA-Public Use
  Company Number: US-JCAR017-FOL-001-1031004-20220217-0004SG

PATIENT
  Age: 72 Year
  Sex: Male
  Weight: 68 kg

DRUGS (25)
  1. LISOCABTAGENE MARALEUCEL [Suspect]
     Active Substance: LISOCABTAGENE MARALEUCEL
     Indication: Marginal zone lymphoma
     Dosage: 100X10^6 CAR+ T CELLS X ONCE
     Route: 042
     Dates: start: 20220111, end: 20220111
  2. CYCLOPHOSPHAMIDE [Suspect]
     Active Substance: CYCLOPHOSPHAMIDE
     Indication: Marginal zone lymphoma
     Dosage: 567 MG X 1 X 1 DAYS
     Route: 042
     Dates: start: 20220106, end: 20220106
  3. CYCLOPHOSPHAMIDE [Suspect]
     Active Substance: CYCLOPHOSPHAMIDE
     Dosage: 567 MG X 1 X 1 DAYS
     Route: 042
     Dates: start: 20220107, end: 20220107
  4. CYCLOPHOSPHAMIDE [Suspect]
     Active Substance: CYCLOPHOSPHAMIDE
     Dosage: 567 MG X 1 X 1 DAYS
     Route: 042
     Dates: start: 20220108, end: 20220108
  5. FLUDARABINE [Suspect]
     Active Substance: FLUDARABINE PHOSPHATE
     Indication: Marginal zone lymphoma
     Dosage: 45.25 MG X 1 X 1 DAYS
     Route: 042
     Dates: start: 20220106, end: 20220106
  6. FLUDARABINE [Suspect]
     Active Substance: FLUDARABINE PHOSPHATE
     Dosage: 45.25 MG X 1 X 1 DAYS
     Route: 042
     Dates: start: 20220107, end: 20220107
  7. FLUDARABINE [Suspect]
     Active Substance: FLUDARABINE PHOSPHATE
     Dosage: 45.25 MG X 1 X 1 DAYS
     Route: 042
     Dates: start: 20220108, end: 20220108
  8. ACYCLOVIR [Concomitant]
     Active Substance: ACYCLOVIR
     Indication: Prophylaxis
     Dosage: 400 MG X 1 X 1 DAYS
     Route: 048
     Dates: start: 20220111
  9. DIPHENHYDRAMINE [Concomitant]
     Active Substance: DIPHENHYDRAMINE
     Indication: Prophylaxis
     Dosage: 25 MG X ONCE
     Route: 048
     Dates: start: 20220125, end: 20220125
  10. FOLIC ACID-VITAMIN B6-VITAMIN B12 [Concomitant]
     Indication: Prophylaxis
     Dosage: 2.5-25-2 MG X 1 X 1 DAYS
     Route: 048
     Dates: start: 20220110, end: 20220203
  11. ISAVUCONAZONIUM SULFATE [Concomitant]
     Active Substance: ISAVUCONAZONIUM SULFATE
     Indication: Prophylaxis
     Dosage: 372 MG X 1 X 1 DAYS
     Route: 048
     Dates: start: 20220111, end: 20220119
  12. LOVENOX [Concomitant]
     Active Substance: ENOXAPARIN SODIUM
     Indication: Prophylaxis
     Dosage: 40 MG X 1 X 1 DAYS
     Route: 058
     Dates: start: 20220111, end: 20220119
  13. MEDICATED LIP PROTECTANT [Concomitant]
     Indication: Prophylaxis
     Dosage: 1 APPLICATION X PRN
     Route: 061
     Dates: start: 20220110, end: 20220203
  14. MEROPENEM [Concomitant]
     Active Substance: MEROPENEM
     Indication: Prophylaxis
     Dosage: 1000 MG X 1 X 12 HOURS
     Route: 042
     Dates: start: 20220119, end: 20220123
  15. MICAFUNGIN [Concomitant]
     Active Substance: MICAFUNGIN
     Indication: Prophylaxis
     Dosage: 100 MG X 1 X 1 DAYS
     Route: 042
     Dates: start: 20220120, end: 20220203
  16. PANTOPRAZOLE [Concomitant]
     Active Substance: PANTOPRAZOLE
     Indication: Gastrooesophageal reflux disease
     Dosage: 40 MG X 1 X 1 DAYS
     Route: 048
     Dates: start: 20220111, end: 20220123
  17. PANTOPRAZOLE [Concomitant]
     Active Substance: PANTOPRAZOLE
     Dosage: 40 MG X 2 X 1 DAYS
     Route: 048
     Dates: start: 20220123, end: 20220131
  18. PANTOPRAZOLE [Concomitant]
     Active Substance: PANTOPRAZOLE
     Dosage: 40 MG X 1 X 1 DAYS
     Route: 048
     Dates: start: 20220201
  19. PIPERACILLIN AND TAZOBACTAM [Concomitant]
     Active Substance: PIPERACILLIN SODIUM\TAZOBACTAM SODIUM
     Indication: Prophylaxis
     Dosage: 3.375 G X 1 X 8 HOURS
     Route: 042
     Dates: start: 20220116, end: 20220119
  20. PRAVASTATIN [Concomitant]
     Active Substance: PRAVASTATIN
     Indication: Hyperlipidaemia
     Dosage: 10 MG X 1 X 1 DAYS
     Route: 048
     Dates: start: 20210716, end: 20220121
  21. PRAVASTATIN [Concomitant]
     Active Substance: PRAVASTATIN
     Dosage: 10 MG X 1 X 1 DAYS
     Route: 048
     Dates: start: 20220131
  22. SODIUM CHLORIDE NASAL SPRAY 0.65% [Concomitant]
     Indication: Prophylaxis
     Dosage: 1 SPRAY X PRN
     Route: 055
     Dates: start: 20220113, end: 20220203
  23. SUCRALFATE [Concomitant]
     Active Substance: SUCRALFATE
     Indication: Gastrooesophageal reflux disease
     Dosage: 1 G X 4 X 1 DAYS
     Route: 048
     Dates: start: 20220123, end: 20220131
  24. SULFAMETHOXAZOLE\TRIMETHOPRIM [Concomitant]
     Active Substance: SULFAMETHOXAZOLE\TRIMETHOPRIM
     Indication: Prophylaxis
     Dosage: 800-160 MG X 3 X 1 WEEKS
     Route: 048
     Dates: start: 20220112, end: 20220121
  25. SULFAMETHOXAZOLE\TRIMETHOPRIM [Concomitant]
     Active Substance: SULFAMETHOXAZOLE\TRIMETHOPRIM
     Dosage: 400-80 MG X 3 X 1 WEEKS
     Route: 048
     Dates: start: 20220124

REACTIONS (1)
  - Neurotoxicity [Recovered/Resolved]

NARRATIVE: CASE EVENT DATE: 20220212
